FAERS Safety Report 7553379-6 (Version None)
Quarter: 2011Q2

REPORT INFORMATION
  Report Type: 
  Country: None (occurrence: None)
  Receive Date: 20110617
  Receipt Date: 20110422
  Transmission Date: 20111010
  Serious: No
  Sender: FDA-Public Use
  Company Number: A0924220A

PATIENT
  Age: 64 Year
  Sex: Male
  Weight: 82.7 kg

DRUGS (11)
  1. SEREVENT [Concomitant]
  2. EXJADE [Concomitant]
  3. SPIRONOLACTONE [Concomitant]
  4. LASIX [Concomitant]
  5. PREDNISONE [Concomitant]
  6. PROMACTA [Suspect]
     Dosage: 50MG PER DAY
     Route: 048
     Dates: start: 20110316, end: 20110420
  7. SINGULAIR [Concomitant]
  8. LORTAB [Concomitant]
  9. ALLEGRA [Concomitant]
  10. POTASSIUM [Concomitant]
  11. FLONASE [Concomitant]

REACTIONS (1)
  - DYSPNOEA [None]
